FAERS Safety Report 7860546-0 (Version None)
Quarter: 2011Q4

REPORT INFORMATION
  Report Type: 
  Country: None (occurrence: None)
  Receive Date: 20111026
  Receipt Date: 20111017
  Transmission Date: 20120403
  Serious: Yes (Other)
  Sender: FDA-Public Use
  Company Number: ACO_27329_2011

PATIENT
  Age: 66 Year
  Sex: Female

DRUGS (12)
  1. VIGAMOX [Concomitant]
  2. HYDROCHLOROTHIAZIDE [Concomitant]
  3. METHOTREXATE [Concomitant]
  4. EVOXAC [Concomitant]
  5. CARVEDILOL [Concomitant]
  6. LYRICA [Concomitant]
  7. CRESTOR [Concomitant]
  8. PREDNISOLONE [Concomitant]
  9. AMPYRA [Suspect]
     Indication: GAIT DISTURBANCE
     Dosage: 10 MG, Q 12 HRS
     Dates: start: 20101021
  10. PAROXETINE HCL [Concomitant]
  11. KETOROLAC (KETOROLAC) [Concomitant]
  12. ATENOLOL [Concomitant]

REACTIONS (2)
  - HYPERTENSION [None]
  - CATARACT OPERATION [None]
